FAERS Safety Report 15752866 (Version 1)
Quarter: 2018Q4

REPORT INFORMATION
  Report Type: Spontaneous
  Country: US (occurrence: US)
  Receive Date: 20181221
  Receipt Date: 20181221
  Transmission Date: 20190205
  Serious: Yes (Other)
  Sender: FDA-Public Use
  Company Number: US-B.I. PHARMACEUTICALS,INC./RIDGEFIELD-2018-BI-060674

PATIENT
  Age: 71 Year
  Sex: Female

DRUGS (2)
  1. SPIRIVA [Suspect]
     Active Substance: TIOTROPIUM BROMIDE MONOHYDRATE
     Indication: CHRONIC OBSTRUCTIVE PULMONARY DISEASE
     Dosage: ACTION(S) TAKEN WITH PRODUCT: DOSE NOT CHANGED
     Route: 055
     Dates: start: 2010
  2. SPIRIVA [Suspect]
     Active Substance: TIOTROPIUM BROMIDE MONOHYDRATE
     Indication: EMPHYSEMA

REACTIONS (5)
  - Myocardial infarction [Recovered/Resolved]
  - Nasopharyngitis [Unknown]
  - Bronchitis [Unknown]
  - Chronic obstructive pulmonary disease [Unknown]
  - Dyspnoea [Unknown]

NARRATIVE: CASE EVENT DATE: 201512
